FAERS Safety Report 14484438 (Version 1)
Quarter: 2018Q1

REPORT INFORMATION
  Report Type: Spontaneous
  Country: FR (occurrence: FR)
  Receive Date: 20180205
  Receipt Date: 20180205
  Transmission Date: 20180509
  Serious: Yes (Life-Threatening)
  Sender: FDA-Public Use
  Company Number: FR-CONCORDIA PHARMACEUTICALS INC.-E2B_00009720

PATIENT
  Age: 75 Year
  Sex: Male

DRUGS (2)
  1. CORDARONE [Suspect]
     Active Substance: AMIODARONE HYDROCHLORIDE
     Indication: ATRIAL FIBRILLATION
     Dosage: 1 CP LE 19/07; DU 20/07 AU 02/08 2 CP/J PUIS DU 02/08 AU 08/08 1 CP/J
     Route: 048
     Dates: start: 20170719, end: 20170808
  2. DIGOXIN. [Suspect]
     Active Substance: DIGOXIN
     Indication: ATRIAL FIBRILLATION
     Dosage: 0.125/J JUSQU^AU 04/08, PUIS 1 JOUR SUR 2 JUSQU^AU 12/08.
     Route: 048
     Dates: start: 20170719, end: 20170812

REACTIONS (2)
  - Bradycardia [Recovered/Resolved]
  - Cardioactive drug level increased [Recovered/Resolved]

NARRATIVE: CASE EVENT DATE: 20170803
